FAERS Safety Report 5797470-3 (Version None)
Quarter: 2008Q2

REPORT INFORMATION
  Report Type: 
  Country: None (occurrence: None)
  Receive Date: 20080630
  Receipt Date: 20080612
  Transmission Date: 20081010
  Serious: Yes (Death)
  Sender: FDA-Public Use
  Company Number: ALA_00085_2008

PATIENT
  Sex: Female

DRUGS (4)
  1. REGLAN [Suspect]
     Indication: GASTRITIS
     Dosage: (10 MG QID ORAL)
     Route: 048
     Dates: start: 20050901
  2. REGLAN [Suspect]
     Indication: GASTROOESOPHAGEAL REFLUX DISEASE
     Dosage: (10 MG QID ORAL)
     Route: 048
     Dates: start: 20050901
  3. REGLAN [Suspect]
     Indication: GASTRITIS
     Dosage: (DF INTRAVENOUS)
     Route: 042
     Dates: start: 20050914, end: 20050915
  4. REGLAN [Suspect]
     Indication: GASTROOESOPHAGEAL REFLUX DISEASE
     Dosage: (DF INTRAVENOUS)
     Route: 042
     Dates: start: 20050914, end: 20050915

REACTIONS (8)
  - AKATHISIA [None]
  - ANXIETY [None]
  - DYSKINESIA [None]
  - GUN SHOT WOUND [None]
  - HEAD INJURY [None]
  - SUICIDAL IDEATION [None]
  - TARDIVE DYSKINESIA [None]
  - TREMOR [None]
